FAERS Safety Report 6337164-9 (Version None)
Quarter: 2009Q3

REPORT INFORMATION
  Report Type: 
  Country: None (occurrence: None)
  Receive Date: 20090831
  Receipt Date: 20090821
  Transmission Date: 20100115
  Serious: Yes (Other)
  Sender: FDA-Public Use
  Company Number: 2009JP005163

PATIENT
  Age: 37 Year
  Sex: Female
  Weight: 53.7 kg

DRUGS (7)
  1. TACROLIMUS [Suspect]
     Indication: LUPUS NEPHRITIS
     Dosage: 3 MG,/D, ORAL
     Route: 048
     Dates: start: 20080229
  2. PREDNISOLONE [Concomitant]
  3. DIOVAN (VALSARTAN) PER ORAL [Concomitant]
  4. ALFAROL (ALFACALCIDOL) CAPSULE [Concomitant]
  5. GASTER (FAMOTIDINE) ORODISPERSIBLE CR TABLET [Concomitant]
  6. CRESTOR (ROSUVASTATIN CALCIUM) PER ORAL NOS [Concomitant]
  7. LOSARTAN POTASSIUM (LOSARTAN POTASSIUM) PER ORAL NOS [Concomitant]

REACTIONS (1)
  - OVARIAN GERM CELL TERATOMA BENIGN [None]
